FAERS Safety Report 8064315-0 (Version None)
Quarter: 2012Q1

REPORT INFORMATION
  Report Type: 
  Country: None (occurrence: None)
  Receive Date: 20120123
  Receipt Date: 20120116
  Transmission Date: 20120608
  Serious: Yes (Other)
  Sender: FDA-Public Use
  Company Number: BR-ROXANE LABORATORIES, INC.-2012-RO-00484RO

PATIENT
  Age: 50 Year
  Sex: Male

DRUGS (4)
  1. METHYLPREDNISOLONE [Suspect]
     Indication: TYPE 2 LEPRA REACTION
  2. AZATHIOPRINE [Suspect]
     Indication: TYPE 2 LEPRA REACTION
     Dosage: 100 MG
  3. PREDNISONE [Suspect]
     Indication: TYPE 2 LEPRA REACTION
  4. THALIDOMIDE [Suspect]
     Indication: TYPE 2 LEPRA REACTION

REACTIONS (1)
  - THROMBOCYTOPENIA [None]
